FAERS Safety Report 9349426 (Version 3)
Quarter: 2014Q1

REPORT INFORMATION
  Report Type: Spontaneous
  Country: US (occurrence: US)
  Receive Date: 20130614
  Receipt Date: 20140225
  Transmission Date: 20141002
  Serious: Yes (Hospitalization)
  Sender: FDA-Public Use
  Company Number: US-B.I. PHARMACEUTICALS,INC./RIDGEFIELD-2013-BI-16559BP

PATIENT
  Age: 82 Year
  Sex: Male
  Weight: 80.74 kg

DRUGS (9)
  1. PRADAXA [Suspect]
     Indication: CEREBROVASCULAR ACCIDENT PROPHYLAXIS
     Dosage: 300 MG
     Route: 048
     Dates: start: 20111110, end: 20111219
  2. PRADAXA [Suspect]
     Indication: THROMBOSIS PROPHYLAXIS
  3. PRADAXA [Suspect]
     Indication: ATRIAL FIBRILLATION
  4. SODIUM CHLORIDE [Concomitant]
     Route: 065
  5. DIOVAN [Concomitant]
     Route: 065
  6. VITAMIN D3 [Concomitant]
     Route: 048
  7. VITAMIN C [Concomitant]
     Dosage: 250 MG
     Route: 048
  8. CALCIUM CARBONATE [Concomitant]
     Dosage: 1250 MG
     Route: 048
  9. FLOMAX [Concomitant]
     Dosage: 0.4 MG
     Route: 048

REACTIONS (4)
  - Gastrointestinal haemorrhage [Unknown]
  - Hepatic haemorrhage [Recovered/Resolved]
  - Haemorrhagic anaemia [Unknown]
  - Haematuria [Recovered/Resolved]
